FAERS Safety Report 5946622-8 (Version None)
Quarter: 2008Q4

REPORT INFORMATION
  Report Type: 
  Country: None (occurrence: None)
  Receive Date: 20081110
  Receipt Date: 20081030
  Transmission Date: 20090506
  Serious: Yes (Life-Threatening)
  Sender: FDA-Public Use
  Company Number: JP-ROCHE-592669

PATIENT
  Sex: Male

DRUGS (1)
  1. ROCEPHIN [Suspect]
     Indication: PHARYNGOTONSILLITIS
     Dosage: ROUTE: INTRAVENOUS (NOS)
     Route: 042
     Dates: start: 20081014, end: 20081014

REACTIONS (1)
  - ANAPHYLACTIC SHOCK [None]
